FAERS Safety Report 9398526 (Version 1)
Quarter: 2013Q3

REPORT INFORMATION
  Report Type: Spontaneous
  Country: GB (occurrence: GB)
  Receive Date: 20130712
  Receipt Date: 20130712
  Transmission Date: 20140515
  Serious: Yes (Other)
  Sender: FDA-Public Use
  Company Number: GB-TEVA-417114ISR

PATIENT
  Age: 73 Year
  Sex: Female

DRUGS (2)
  1. TERBINAFINE [Suspect]
     Indication: FUNGAL INFECTION
     Dosage: 1 DOSAGE FORMS DAILY;
     Route: 048
     Dates: start: 20130529, end: 20130606
  2. ASPIRIN [Concomitant]
     Dosage: 75 MILLIGRAM DAILY;
     Route: 048
     Dates: start: 20120614

REACTIONS (5)
  - Dizziness [Recovering/Resolving]
  - Feeling hot [Recovering/Resolving]
  - Diarrhoea [Recovering/Resolving]
  - Rash generalised [Recovering/Resolving]
  - Erythema [Recovering/Resolving]
